FAERS Safety Report 6267436-8 (Version None)
Quarter: 2009Q3

REPORT INFORMATION
  Report Type: 
  Country: None (occurrence: None)
  Receive Date: 20090714
  Receipt Date: 20080414
  Transmission Date: 20100115
  Serious: Yes (Death)
  Sender: FDA-Public Use
  Company Number: ZA-AVENTIS-200721544GDDC

PATIENT
  Age: 51 Year
  Sex: Female

DRUGS (9)
  1. TAXOTERE [Suspect]
     Route: 041
     Dates: start: 20060606
  2. TAXOTERE [Suspect]
     Route: 042
     Dates: end: 20060905
  3. IBUPROFEN [Concomitant]
     Route: 048
     Dates: start: 20060627, end: 20061024
  4. ZOLPIDEM [Concomitant]
     Indication: INSOMNIA
     Dosage: DOSE QUANTITY: 1
     Route: 048
     Dates: start: 20060627, end: 20061024
  5. LASIX [Concomitant]
     Route: 048
     Dates: start: 20060707, end: 20061024
  6. SLOW-K [Concomitant]
     Dosage: DOSE: 1 TAB
     Route: 048
     Dates: start: 20060824, end: 20061024
  7. STILPANE                           /01152401/ [Concomitant]
     Dosage: DOSE QUANTITY: 2
  8. SPIRONOLACTONE [Concomitant]
  9. TREPILINE                          /00002201/ [Concomitant]

REACTIONS (5)
  - BREAST CANCER [None]
  - CONFUSIONAL STATE [None]
  - COUGH [None]
  - OEDEMA [None]
  - SOMNOLENCE [None]
